FAERS Safety Report 7365132-7 (Version None)
Quarter: 2011Q1

REPORT INFORMATION
  Report Type: 
  Country: None (occurrence: None)
  Receive Date: 20110321
  Receipt Date: 20110315
  Transmission Date: 20110831
  Serious: Yes (Other)
  Sender: FDA-Public Use
  Company Number: US-PFIZER INC-2011058082

PATIENT
  Sex: Female

DRUGS (2)
  1. CARBIDOPA + LEVODOPA [Suspect]
     Indication: PARKINSON'S DISEASE
     Dosage: TWENTY 25/100 TABLETS/ 1 TABLET EVERY 90 MINUTES
     Route: 048
     Dates: start: 20100101
  2. XANAX [Suspect]
     Dosage: UNK

REACTIONS (4)
  - DRUG INTOLERANCE [None]
  - DIPLOPIA [None]
  - EYELID FUNCTION DISORDER [None]
  - HEADACHE [None]
